FAERS Safety Report 8314592-3 (Version None)
Quarter: 2012Q2

REPORT INFORMATION
  Report Type: 
  Country: None (occurrence: None)
  Receive Date: 20120426
  Receipt Date: 20120423
  Transmission Date: 20120825
  Serious: Yes (Hospitalization)
  Sender: FDA-Public Use
  Company Number: US-PFIZER INC-2010149961

PATIENT
  Sex: Female
  Weight: 48.3 kg

DRUGS (20)
  1. LYRICA [Suspect]
     Dosage: 50 MG, 3X/DAY
     Route: 048
     Dates: start: 20100513
  2. SOMA [Suspect]
     Indication: ANXIETY
     Dosage: 175 MG, 3X/DAY
     Route: 048
     Dates: start: 20100901
  3. ATIVAN [Suspect]
     Indication: ANXIETY
     Dosage: 0.25 MG, 3X/DAY
     Route: 048
     Dates: start: 20100630, end: 20100901
  4. CYMBALTA [Suspect]
     Indication: ANXIETY
     Dosage: 60 MG, 1X/DAY
     Route: 048
     Dates: start: 20100901
  5. FERROUS SULFATE [Concomitant]
     Indication: SUPPLEMENTATION THERAPY
     Dosage: 325 MG, 1X/DAY
     Route: 048
     Dates: start: 20060101
  6. BENZTROPINE MESYLATE [Suspect]
     Indication: AKATHISIA
     Dosage: 1 MG, 2X/DAY
     Route: 048
     Dates: start: 20100728
  7. EFFEXOR XR [Suspect]
     Indication: HOT FLUSH
     Dosage: 150 MG, 1X/DAY
     Route: 048
     Dates: start: 20080101
  8. MECLIZINE [Suspect]
     Indication: AKATHISIA
     Dosage: 12.5 MG, 3X/DAY
     Route: 048
     Dates: start: 20100809
  9. PROMETHAZINE [Concomitant]
     Indication: NAUSEA
     Dosage: 25 MG, 1X/DAY
     Route: 048
     Dates: start: 20090101
  10. OMEPRAZOLE [Concomitant]
     Indication: GASTROOESOPHAGEAL REFLUX DISEASE
     Dosage: 20 MG, 1X/DAY
     Route: 048
     Dates: start: 20090101
  11. FOLIC ACID [Concomitant]
     Indication: SUPPLEMENTATION THERAPY
     Dosage: 2 MG, QIW
     Route: 048
     Dates: start: 20100225
  12. SEROQUEL [Suspect]
     Indication: ANXIETY
     Dosage: 300 MG, 2X/DAY
     Route: 048
     Dates: start: 20060101
  13. METHOCARBAMOL [Suspect]
     Indication: MUSCLE RELAXANT THERAPY
     Dosage: 500 MG, AS NEEDED
     Route: 048
     Dates: start: 20090101
  14. LORTAB [Suspect]
     Indication: RHEUMATOID ARTHRITIS
     Dosage: 7.5/500 MG
     Route: 048
     Dates: start: 20060101
  15. RISPERDAL [Suspect]
     Dosage: UNK
     Dates: start: 20100901, end: 20100914
  16. PREDNISONE [Concomitant]
     Indication: RHEUMATOID ARTHRITIS
     Dosage: 10 MG, 1X/DAY
     Route: 048
     Dates: start: 20100112, end: 20100914
  17. METHOTREXATE SODIUM [Suspect]
     Indication: RHEUMATOID ARTHRITIS
     Dosage: 10 MG, WEEKLY
     Route: 048
     Dates: start: 20100225, end: 20101116
  18. LAMOTRIGINE [Suspect]
     Indication: HALLUCINATION
     Dosage: 100 MG, 1X/DAY
     Route: 048
     Dates: start: 20100901
  19. CYMBALTA [Suspect]
     Dosage: 30 MG, 1X/DAY
     Route: 048
     Dates: start: 20100701, end: 20100901
  20. ALBUTEROL [Concomitant]
     Indication: RHINITIS SEASONAL
     Dosage: 2 PUFFS
     Route: 055
     Dates: start: 20100517

REACTIONS (1)
  - PSYCHOTIC DISORDER [None]
